FAERS Safety Report 10492074 (Version 1)
Quarter: 2014Q4

REPORT INFORMATION
  Report Type: Spontaneous
  Country: US (occurrence: US)
  Receive Date: 20141002
  Receipt Date: 20141002
  Transmission Date: 20150528
  Serious: No
  Sender: FDA-Public Use
  Company Number: US-GLAXOSMITHKLINE-A1064727A

PATIENT
  Age: 59 Year
  Sex: Male

DRUGS (6)
  1. MVI [Concomitant]
     Active Substance: VITAMINS
  2. ADVAIR HFA [Suspect]
     Active Substance: FLUTICASONE PROPIONATE\SALMETEROL XINAFOATE
     Indication: ASTHMA
     Dosage: 1PUFF PER DAY
     Route: 055
     Dates: start: 20140107
  3. GINKO BILOBA [Concomitant]
  4. PROAIR HFA [Concomitant]
     Active Substance: ALBUTEROL SULFATE
  5. VITAMIN C [Concomitant]
     Active Substance: ASCORBIC ACID
  6. VITAMIN D [Concomitant]
     Active Substance: CHOLECALCIFEROL

REACTIONS (12)
  - Headache [Unknown]
  - Vision blurred [Not Recovered/Not Resolved]
  - Visual impairment [Unknown]
  - Toothache [Unknown]
  - Eye pain [Unknown]
  - Sensory disturbance [Unknown]
  - Vision blurred [Unknown]
  - Visual acuity reduced [Unknown]
  - Photophobia [Unknown]
  - Sensitivity of teeth [Unknown]
  - Pyrexia [Unknown]
  - Therapeutic response unexpected [Unknown]

NARRATIVE: CASE EVENT DATE: 201402
